FAERS Safety Report 6454449-6 (Version None)
Quarter: 2009Q4

REPORT INFORMATION
  Report Type: 
  Country: None (occurrence: None)
  Receive Date: 20091124
  Receipt Date: 20091113
  Transmission Date: 20100525
  Serious: Yes (Other)
  Sender: FDA-Public Use
  Company Number: US-JNJCH-2009030183

PATIENT
  Age: 32 Year
  Sex: Female
  Weight: 55.3 kg

DRUGS (1)
  1. LISTERINE WHITENING PRE-BRUSH RINSE [Suspect]
     Indication: DENTAL CARE
     Dosage: DAILY DOSE:15ML-TEXT:THREE TEASPOONS ONCE A DAY
     Route: 048

REACTIONS (3)
  - OEDEMA MOUTH [None]
  - ORAL MUCOSAL EXFOLIATION [None]
  - SALIVARY GLAND DISORDER [None]
